FAERS Safety Report 17463240 (Version 1)
Quarter: 2020Q1

REPORT INFORMATION
  Report Type: Spontaneous
  Country: PE (occurrence: PE)
  Receive Date: 20200226
  Receipt Date: 20200226
  Transmission Date: 20200409
  Serious: Yes (Other)
  Sender: FDA-Public Use
  Company Number: PE-ACTELION-A-CH2020-202168

PATIENT

DRUGS (3)
  1. ELBASVIR. [Interacting]
     Active Substance: ELBASVIR
     Indication: PRODUCT USED FOR UNKNOWN INDICATION
     Route: 048
  2. TRACLEER [Suspect]
     Active Substance: BOSENTAN
     Indication: PULMONARY ARTERIAL HYPERTENSION
     Route: 048
  3. GRAZOPREVIR. [Interacting]
     Active Substance: GRAZOPREVIR
     Indication: PRODUCT USED FOR UNKNOWN INDICATION
     Route: 048

REACTIONS (2)
  - Drug interaction [Unknown]
  - Hepatotoxicity [Unknown]
